FAERS Safety Report 4657782-3 (Version None)
Quarter: 2005Q2

REPORT INFORMATION
  Report Type: 
  Country: None (occurrence: None)
  Receive Date: 20050510
  Receipt Date: 20050413
  Transmission Date: 20051028
  Serious: Yes (Death, Life-Threatening, Other)
  Sender: FDA-Public Use
  Company Number: JP-BRISTOL-MYERS SQUIBB COMPANY-12931028

PATIENT
  Age: 81 Year
  Sex: Female

DRUGS (5)
  1. TAXOL [Suspect]
     Indication: OVARIAN CANCER
     Route: 042
     Dates: start: 20050314, end: 20050412
  2. ONDANSETRON [Concomitant]
     Route: 048
  3. DIPHENHYDRAMINE HCL [Concomitant]
     Route: 048
  4. RANITIDINE HCL [Concomitant]
     Route: 042
  5. DEXAMETHASONE SODIUM PHOSPHATE [Concomitant]
     Route: 042
     Dates: start: 20050412, end: 20050412

REACTIONS (11)
  - APNOEA [None]
  - BLOOD PRESSURE DECREASED [None]
  - BRONCHOSPASM [None]
  - CARDIO-RESPIRATORY ARREST [None]
  - CYANOSIS [None]
  - HYPERSENSITIVITY [None]
  - LOSS OF CONSCIOUSNESS [None]
  - MUSCLE SPASMS [None]
  - NAUSEA [None]
  - RENAL FAILURE ACUTE [None]
  - URINE OUTPUT DECREASED [None]
